FAERS Safety Report 9871585 (Version 2)
Quarter: 2014Q2

REPORT INFORMATION
  Report Type: Spontaneous
  Country: US (occurrence: US)
  Receive Date: 20140205
  Receipt Date: 20140407
  Transmission Date: 20141212
  Serious: No
  Sender: FDA-Public Use
  Company Number: US-TEVA-461120USA

PATIENT
  Age: 19 Year
  Sex: Female
  Weight: 54.48 kg

DRUGS (1)
  1. PLAN B ONE-STEP [Suspect]
     Indication: POST COITAL CONTRACEPTION
     Dosage: 1.5 MILLIGRAM DAILY;
     Route: 048
     Dates: start: 201401, end: 201401

REACTIONS (3)
  - Pelvic pain [Recovered/Resolved]
  - Dizziness [Recovered/Resolved]
  - Menstruation irregular [Recovered/Resolved]
